FAERS Safety Report 9458335 (Version 1)
Quarter: 2013Q3

REPORT INFORMATION
  Report Type: Spontaneous
  Country: GB (occurrence: GB)
  Receive Date: 20130814
  Receipt Date: 20130814
  Transmission Date: 20140515
  Serious: Yes (Disabling, Other)
  Sender: FDA-Public Use
  Company Number: GB-ROCHE-1260258

PATIENT
  Sex: Male
  Weight: 75 kg

DRUGS (6)
  1. ROACCUTANE [Suspect]
     Indication: PRODUCT USED FOR UNKNOWN INDICATION
     Route: 048
     Dates: start: 19860101, end: 19881231
  2. AMOXYCILLIN [Concomitant]
  3. CITALOPRAM HYDROBROMIDE [Concomitant]
  4. FLUOXETINE HYDROCHLORIDE [Concomitant]
  5. PARACETAMOL [Concomitant]
  6. TETRACYCLINE [Concomitant]

REACTIONS (9)
  - Thinking abnormal [Not Recovered/Not Resolved]
  - Depression [Not Recovered/Not Resolved]
  - Eating disorder [Not Recovered/Not Resolved]
  - Feeling abnormal [Not Recovered/Not Resolved]
  - Mental disorder [Not Recovered/Not Resolved]
  - Negative thoughts [Not Recovered/Not Resolved]
  - Self esteem decreased [Not Recovered/Not Resolved]
  - Suicidal behaviour [Not Recovered/Not Resolved]
  - Fatigue [Not Recovered/Not Resolved]
